FAERS Safety Report 6878436-9 (Version None)
Quarter: 2010Q3

REPORT INFORMATION
  Report Type: 
  Country: None (occurrence: None)
  Receive Date: 20100728
  Receipt Date: 20100719
  Transmission Date: 20110219
  Serious: Yes (Other)
  Sender: FDA-Public Use
  Company Number: NZ-BAXTER-2010BH019202

PATIENT

DRUGS (5)
  1. SEVOFLURANE [Suspect]
     Indication: DRUG EXPOSURE DURING PREGNANCY
     Route: 064
  2. PROPOFOL [Concomitant]
     Indication: ANAESTHESIA
     Route: 064
  3. SUXAMETHONIUM [Concomitant]
     Indication: ANAESTHESIA
     Route: 064
  4. NITROUS OXIDE [Concomitant]
     Indication: ANAESTHESIA
     Route: 064
  5. MIDAZOLAM HCL [Concomitant]
     Indication: PRODUCT USED FOR UNKNOWN INDICATION
     Route: 064

REACTIONS (5)
  - APNOEIC ATTACK [None]
  - DEVICE FAILURE [None]
  - DRUG EXPOSURE DURING PREGNANCY [None]
  - HYPOTONIA [None]
  - OVERDOSE [None]
